FAERS Safety Report 7071639-2 (Version None)
Quarter: 2010Q4

REPORT INFORMATION
  Report Type: 
  Country: None (occurrence: None)
  Receive Date: 20101029
  Receipt Date: 20090928
  Transmission Date: 20110411
  Serious: No
  Sender: FDA-Public Use
  Company Number: A0809816A

PATIENT
  Age: 68 Year
  Sex: Female

DRUGS (5)
  1. ADVAIR DISKUS 100/50 [Suspect]
     Route: 055
  2. SYNTHROID [Suspect]
     Route: 065
  3. TENORMIN [Suspect]
     Route: 065
  4. SIMVASTATIN [Suspect]
     Route: 065
  5. UNSPECIFIED MEDICATION [Suspect]
     Route: 065

REACTIONS (1)
  - DRUG INEFFECTIVE [None]
